FAERS Safety Report 10291228 (Version 2)
Quarter: 2014Q3

REPORT INFORMATION
  Report Type: Spontaneous
  Country: US (occurrence: US)
  Receive Date: 20140710
  Receipt Date: 20140710
  Transmission Date: 20150326
  Serious: No
  Sender: FDA-Public Use
  Company Number: US-PURDUE-USA-2013-0104404

PATIENT
  Age: 40 Year
  Sex: Male
  Weight: 153.29 kg

DRUGS (5)
  1. OXYCODONE HYDROCHLORIDE CONTROLLED-RELEASE [Concomitant]
     Active Substance: OXYCODONE HYDROCHLORIDE
     Indication: PAIN
     Dosage: 15 MG, QID PRN
     Route: 048
     Dates: start: 201201
  2. LEVEMIR [Concomitant]
     Active Substance: INSULIN DETEMIR
     Indication: DIABETES MELLITUS
     Dosage: UNK
     Route: 058
     Dates: start: 201201
  3. BUTRANS [Suspect]
     Active Substance: BUPRENORPHINE
     Indication: PAIN
     Dosage: 20 MCG/HR, WEEKLY
     Route: 062
     Dates: start: 20130422, end: 20130608
  4. BUTRANS [Suspect]
     Active Substance: BUPRENORPHINE
     Dosage: 10 MCG/HR, WEEKLY
     Route: 062
     Dates: start: 20130415, end: 20130423
  5. BUTRANS [Suspect]
     Active Substance: BUPRENORPHINE
     Dosage: 5 MCG/HR, WEEKLY
     Route: 062
     Dates: start: 20130409, end: 20130415

REACTIONS (9)
  - Application site scar [Unknown]
  - Application site rash [Not Recovered/Not Resolved]
  - Drug ineffective [Recovered/Resolved]
  - Application site erosion [Unknown]
  - Application site pain [Unknown]
  - Drug effect decreased [Unknown]
  - Application site irritation [Not Recovered/Not Resolved]
  - Wrong technique in drug usage process [Unknown]
  - Application site vesicles [Not Recovered/Not Resolved]

NARRATIVE: CASE EVENT DATE: 20130409
